FAERS Safety Report 8577547-X (Version None)
Quarter: 2012Q3

REPORT INFORMATION
  Report Type: 
  Country: None (occurrence: None)
  Receive Date: 20120807
  Receipt Date: 20120806
  Transmission Date: 20120928
  Serious: Yes (Death, Hospitalization, Other)
  Sender: FDA-Public Use
  Company Number: TW-ROCHE-1097772

PATIENT
  Sex: Female

DRUGS (9)
  1. MABTHERA [Suspect]
     Indication: RHEUMATOID ARTHRITIS
     Route: 042
     Dates: start: 20110831, end: 20110919
  2. HYDROXYCHLOROQUINE SULFATE [Concomitant]
  3. FOLIC ACID [Concomitant]
  4. METHOTREXATE SODIUM [Concomitant]
  5. SULFASALAZINE [Concomitant]
  6. ALENDRONATE SODIUM [Concomitant]
  7. BISOPROLOL FUMARATE [Concomitant]
  8. FERALL [Concomitant]
  9. PREDNISOLONE [Concomitant]

REACTIONS (4)
  - CARDIAC DISORDER [None]
  - FALL [None]
  - FRACTURE [None]
  - RENAL FAILURE [None]
